FAERS Safety Report 20599576 (Version 3)
Quarter: 2024Q3

REPORT INFORMATION
  Report Type: Spontaneous
  Country: AU (occurrence: AU)
  Receive Date: 20220316
  Receipt Date: 20240924
  Transmission Date: 20241017
  Serious: Yes (Hospitalization, Other)
  Sender: STRIDES
  Company Number: AU-MLMSERVICE-20220301-3394667-1

PATIENT
  Sex: Female

DRUGS (9)
  1. MYCOPHENOLATE MOFETIL [Suspect]
     Active Substance: MYCOPHENOLATE MOFETIL
     Indication: Lung transplant
     Dosage: UNK
     Route: 065
  2. MYCOPHENOLATE MOFETIL [Suspect]
     Active Substance: MYCOPHENOLATE MOFETIL
     Indication: Allogenic bone marrow transplantation therapy
  3. MYCOPHENOLATE MOFETIL [Suspect]
     Active Substance: MYCOPHENOLATE MOFETIL
     Indication: Immunosuppressant drug therapy
  4. PREDNISOLONE [Suspect]
     Active Substance: PREDNISOLONE
     Indication: Lung transplant
     Dosage: UNK
     Route: 065
  5. PREDNISOLONE [Suspect]
     Active Substance: PREDNISOLONE
     Indication: Allogenic bone marrow transplantation therapy
  6. PREDNISOLONE [Suspect]
     Active Substance: PREDNISOLONE
     Indication: Immunosuppressant drug therapy
  7. CYCLOSPORINE [Suspect]
     Active Substance: CYCLOSPORINE
     Indication: Lung transplant
     Dosage: UNK
     Route: 065
  8. CYCLOSPORINE [Suspect]
     Active Substance: CYCLOSPORINE
     Indication: Allogenic bone marrow transplantation therapy
  9. CYCLOSPORINE [Suspect]
     Active Substance: CYCLOSPORINE
     Indication: Immunosuppressant drug therapy

REACTIONS (9)
  - Bone lesion [Unknown]
  - Osteonecrosis [Unknown]
  - Osteoporosis [Unknown]
  - Renal impairment [Unknown]
  - Smooth muscle cell neoplasm [Unknown]
  - Hypertension [Unknown]
  - Epstein-Barr virus infection [Unknown]
  - Cytomegalovirus colitis [Recovered/Resolved]
  - Off label use [Unknown]
